FAERS Safety Report 6899353-4 (Version None)
Quarter: 2010Q3

REPORT INFORMATION
  Report Type: 
  Country: None (occurrence: None)
  Receive Date: 20100803
  Receipt Date: 20090410
  Transmission Date: 20110219
  Serious: No
  Sender: FDA-Public Use
  Company Number: US-PFIZER INC-2009152193

PATIENT
  Sex: Female

DRUGS (8)
  1. NEURONTIN [Suspect]
     Indication: TRIGEMINAL NEURALGIA
     Dates: start: 20081101, end: 20081101
  2. LYRICA [Suspect]
     Indication: TRIGEMINAL NEURALGIA
     Dosage: UNK
     Dates: start: 20081201
  3. LAMICTAL [Suspect]
     Indication: TRIGEMINAL NEURALGIA
     Dates: start: 20081201, end: 20081201
  4. ACCUPRIL [Concomitant]
     Dosage: UNK
  5. AMARYL [Concomitant]
     Dosage: UNK
  6. ELAVIL [Concomitant]
     Dosage: UNK
  7. METFORMIN HYDROCHLORIDE [Concomitant]
     Dosage: UNK
  8. OSCAL [Concomitant]
     Dosage: UNK

REACTIONS (2)
  - URTICARIA [None]
  - WEIGHT INCREASED [None]
